FAERS Safety Report 9851427 (Version 4)
Quarter: 2014Q2

REPORT INFORMATION
  Report Type: Report from Study
  Country: GB (occurrence: GB)
  Receive Date: 20140129
  Receipt Date: 20140623
  Transmission Date: 20141212
  Serious: Yes (Hospitalization)
  Sender: FDA-Public Use
  Company Number: GB-009507513-1401GBR012510

PATIENT
  Age: 74 Year
  Sex: Male
  Weight: 63 kg

DRUGS (7)
  1. DEXAMETHASONE [Suspect]
     Indication: PLASMA CELL MYELOMA RECURRENT
     Dosage: 40 MG, 4/28 DAYS (DAYS 1 ,8, 15,22)
     Route: 048
     Dates: start: 20131204, end: 20140101
  2. MLN9708 [Suspect]
     Indication: PLASMA CELL MYELOMA RECURRENT
     Dosage: 4 MG, 3/28 DAYS (DAYS 1 ,8,15)
     Route: 048
     Dates: start: 20131204, end: 20140101
  3. REVLIMID [Suspect]
     Indication: PLASMA CELL MYELOMA RECURRENT
     Dosage: 10 MG, 21/28 DAYS
     Route: 048
     Dates: start: 20131204, end: 20140101
  4. CLEXANE (ENOXAPARIN SODIUM) [Concomitant]
     Indication: PRODUCT USED FOR UNKNOWN INDICATION
     Route: 065
  5. SULFAMETHOXAZOLE (+) TRIMETHOPRIM [Concomitant]
     Indication: PRODUCT USED FOR UNKNOWN INDICATION
     Dosage: 960 MG, 2/1 DAY
     Route: 048
  6. LANSOPRAZOLE [Concomitant]
     Indication: PRODUCT USED FOR UNKNOWN INDICATION
     Dosage: 30 MG, 1/1 DAY
     Route: 048
  7. ASPIRINE [Concomitant]
     Indication: PRODUCT USED FOR UNKNOWN INDICATION
     Dosage: 75 MG, QD
     Route: 065
     Dates: start: 20131204

REACTIONS (2)
  - Lower respiratory tract infection [Recovered/Resolved]
  - Respiratory syncytial virus infection [Recovered/Resolved]
